FAERS Safety Report 6876944-8 (Version None)
Quarter: 2010Q3

REPORT INFORMATION
  Report Type: 
  Country: None (occurrence: None)
  Receive Date: 20100727
  Receipt Date: 20100719
  Transmission Date: 20110219
  Serious: Yes (Death)
  Sender: FDA-Public Use
  Company Number: DE-ELI_LILLY_AND_COMPANY-DE201007004284

PATIENT
  Age: 28 Year
  Sex: Female

DRUGS (1)
  1. ALIMTA [Suspect]
     Indication: BLADDER CANCER
     Dosage: UNK, UNKNOWN
     Route: 042

REACTIONS (3)
  - OFF LABEL USE [None]
  - PANCYTOPENIA [None]
  - TOXIC EPIDERMAL NECROLYSIS [None]
